FAERS Safety Report 7012849-X (Version None)
Quarter: 2010Q3

REPORT INFORMATION
  Report Type: 
  Country: None (occurrence: None)
  Receive Date: 20100924
  Receipt Date: 20100915
  Transmission Date: 20110219
  Serious: Yes (Other)
  Sender: FDA-Public Use
  Company Number: US-US-EMD SERONO, INC.-7017799

PATIENT
  Sex: Female

DRUGS (9)
  1. REBIF [Suspect]
     Indication: MULTIPLE SCLEROSIS
     Route: 058
     Dates: start: 20091016
  2. DOXYCYCLINE [Suspect]
     Indication: FOLLICULITIS
     Dates: start: 20100301
  3. ASPIRIN [Concomitant]
     Indication: HOT FLUSH
  4. OMEPRAZOLE [Concomitant]
     Indication: GASTROOESOPHAGEAL REFLUX DISEASE
  5. NIFEDIPINE [Concomitant]
     Indication: HYPERTENSION
  6. PROZAC [Concomitant]
     Indication: BIPOLAR DISORDER
  7. DEPAKOTE [Concomitant]
     Indication: BIPOLAR DISORDER
  8. ZETIA [Concomitant]
     Indication: BLOOD TRIGLYCERIDES INCREASED
  9. FENOGLIDE [Concomitant]
     Indication: BLOOD TRIGLYCERIDES INCREASED

REACTIONS (4)
  - CLOSTRIDIAL INFECTION [None]
  - FOLLICULITIS [None]
  - INJECTION SITE ERYTHEMA [None]
  - RASH [None]
